FAERS Safety Report 4510871-6 (Version None)
Quarter: 2004Q4

REPORT INFORMATION
  Report Type: 
  Country: None (occurrence: None)
  Receive Date: 20041124
  Receipt Date: 20041116
  Transmission Date: 20050328
  Serious: Yes (Life-Threatening, Hospitalization)
  Sender: FDA-Public Use
  Company Number: US-MERCK-0411USA02876

PATIENT
  Age: 32 Year
  Sex: Male

DRUGS (1)
  1. VIOXX [Suspect]
     Indication: ARTHRALGIA
     Route: 048
     Dates: start: 19991201, end: 20040801

REACTIONS (3)
  - ATRIAL FIBRILLATION [None]
  - CARDIOMYOPATHY [None]
  - VENTRICULAR TACHYCARDIA [None]
